FAERS Safety Report 11117187 (Version 1)
Quarter: 2015Q2

REPORT INFORMATION
  Report Type: Spontaneous
  Country: US (occurrence: US)
  Receive Date: 20150515
  Receipt Date: 20150515
  Transmission Date: 20150821
  Serious: No
  Sender: FDA-Public Use
  Company Number: US-PFIZER INC-2015164645

PATIENT
  Age: 46 Year
  Sex: Female
  Weight: 78 kg

DRUGS (3)
  1. NEURONTIN [Suspect]
     Active Substance: GABAPENTIN
     Indication: MUSCLE SWELLING
     Dosage: 300 MG, UNK (TWO THREE TIMES A DAY)
  2. NEURONTIN [Suspect]
     Active Substance: GABAPENTIN
     Indication: ANGIOPATHY
  3. NEURONTIN [Suspect]
     Active Substance: GABAPENTIN
     Indication: LOCAL SWELLING

REACTIONS (2)
  - Constipation [Unknown]
  - Malaise [Unknown]
